FAERS Safety Report 7366632-6 (Version None)
Quarter: 2011Q1

REPORT INFORMATION
  Report Type: 
  Country: None (occurrence: None)
  Receive Date: 20110225
  Receipt Date: 20101110
  Transmission Date: 20110831
  Serious: No
  Sender: FDA-Public Use
  Company Number: 317192

PATIENT
  Age: 57 Year
  Sex: Female

DRUGS (3)
  1. CARVEDILOL [Concomitant]
  2. VICTOZA [Suspect]
     Indication: OVERWEIGHT
     Dosage: 0.6 MG, QD, SUBCUTANEOUS
     Route: 058
     Dates: start: 20101022, end: 20101026
  3. VICTOZA [Suspect]
     Indication: TYPE 2 DIABETES MELLITUS
     Dosage: 0.6 MG, QD, SUBCUTANEOUS
     Route: 058
     Dates: start: 20101022, end: 20101026

REACTIONS (7)
  - VOMITING [None]
  - ASTHENIA [None]
  - NAUSEA [None]
  - SOMNOLENCE [None]
  - WEIGHT DECREASED [None]
  - DYSGEUSIA [None]
  - DECREASED APPETITE [None]
